FAERS Safety Report 9555857 (Version 5)
Quarter: 2014Q1

REPORT INFORMATION
  Report Type: Report from Study
  Country: FR (occurrence: FR)
  Receive Date: 20130926
  Receipt Date: 20140217
  Transmission Date: 20141002
  Serious: Yes (Death, Life-Threatening, Other)
  Sender: FDA-Public Use
  Company Number: FR-CELGENEUS-056-C4047-12040361

PATIENT
  Age: 63 Year
  Sex: Female
  Weight: 50 kg

DRUGS (8)
  1. CC-4047 [Suspect]
     Indication: PLASMA CELL MYELOMA
     Dosage: 4 MILLIGRAM
     Route: 048
     Dates: start: 20120201, end: 20120206
  2. CC-4047 [Suspect]
     Dosage: 4 MILLIGRAM
     Route: 048
     Dates: start: 20120209, end: 20120330
  3. CC-4047 [Suspect]
     Dosage: 2 MILLIGRAM
     Route: 048
     Dates: end: 20120601
  4. CC-4047 [Suspect]
     Route: 048
     Dates: end: 20130303
  5. DEXAMETHASONE [Concomitant]
     Indication: PLASMA CELL MYELOMA
     Dosage: 40 MILLIGRAM
     Route: 065
     Dates: start: 20120201
  6. DEXAMETHASONE [Concomitant]
     Dosage: 40 MILLIGRAM
     Route: 065
     Dates: start: 201206, end: 201207
  7. DEXAMETHASONE [Concomitant]
     Dosage: 40 MILLIGRAM
     Route: 065
     Dates: end: 20130303
  8. ASPEGIC [Concomitant]
     Indication: THROMBOSIS PROPHYLAXIS
     Dosage: 75 MILLIGRAM
     Route: 065

REACTIONS (3)
  - Plasma cell myeloma [Fatal]
  - Neutropenia [Recovered/Resolved]
  - Thrombocytopenia [Recovered/Resolved]
